FAERS Safety Report 7944633-4 (Version None)
Quarter: 2011Q4

REPORT INFORMATION
  Report Type: 
  Country: None (occurrence: None)
  Receive Date: 20111129
  Receipt Date: 20111122
  Transmission Date: 20120403
  Serious: Yes (Hospitalization, Other)
  Sender: FDA-Public Use
  Company Number: US-JNJFOC-20090709034

PATIENT
  Sex: Male
  Weight: 103.3 kg

DRUGS (24)
  1. VELCADE [Suspect]
     Route: 042
  2. VELCADE [Suspect]
     Route: 042
  3. RITUXAN [Suspect]
     Route: 042
     Dates: start: 20090629, end: 20090723
  4. RITUXAN [Suspect]
     Route: 042
  5. ALOXI [Concomitant]
     Indication: NAUSEA
     Route: 042
     Dates: start: 20090720
  6. ZOFRAN [Concomitant]
     Indication: NAUSEA
     Route: 065
  7. PRILOSEC [Concomitant]
     Indication: NAUSEA
     Route: 065
  8. DOXORUBICIN HCL [Suspect]
     Indication: DIFFUSE LARGE B-CELL LYMPHOMA
     Route: 042
     Dates: start: 20090622
  9. IMODIUM [Concomitant]
     Indication: DIARRHOEA
     Route: 048
     Dates: start: 20090721
  10. VELCADE [Suspect]
     Route: 042
     Dates: start: 20090622, end: 20090723
  11. ATIVAN [Concomitant]
     Indication: NAUSEA
     Route: 065
  12. VELCADE [Suspect]
     Indication: DIFFUSE LARGE B-CELL LYMPHOMA
     Route: 042
     Dates: start: 20090622
  13. VELCADE [Suspect]
     Route: 042
  14. RITUXAN [Suspect]
     Indication: DIFFUSE LARGE B-CELL LYMPHOMA
     Route: 042
  15. RITUXAN [Suspect]
     Route: 042
  16. LOMOTIL [Concomitant]
     Indication: DIARRHOEA
     Route: 048
     Dates: start: 20090728
  17. LORAZEPAM [Concomitant]
     Indication: VOMITING
     Route: 065
     Dates: start: 20090720
  18. VELCADE [Suspect]
     Route: 042
     Dates: end: 20091020
  19. RITUXAN [Suspect]
     Route: 042
  20. RITUXAN [Suspect]
     Route: 042
  21. SODIUM CHLORIDE [Concomitant]
     Indication: VOMITING
     Route: 065
  22. DOXORUBICIN HCL [Suspect]
     Route: 042
     Dates: end: 20090723
  23. ALOXI [Concomitant]
     Indication: PREMEDICATION
     Route: 042
     Dates: start: 20090720
  24. LORAZEPAM [Concomitant]
     Indication: NAUSEA
     Route: 065
     Dates: start: 20090720

REACTIONS (5)
  - DECREASED APPETITE [None]
  - ACUTE PRERENAL FAILURE [None]
  - VOMITING [None]
  - DIARRHOEA [None]
  - FATIGUE [None]
